FAERS Safety Report 6637062-7 (Version None)
Quarter: 2010Q1

REPORT INFORMATION
  Report Type: 
  Country: None (occurrence: None)
  Receive Date: 20100310
  Receipt Date: 20091111
  Transmission Date: 20100710
  Serious: Yes (Congenital Anomaly)
  Sender: FDA-Public Use
  Company Number: LEO-2010-00103

PATIENT
  Sex: Male

DRUGS (24)
  1. INNOHEP [Suspect]
     Dosage: TRANSPLACENTAL, 2 IN 1 D, SUBCUTANEOUS, 2 IN 1 D, 2 IN 1 D, SUBCUTANEOUS, 2 IN 1 D, SUBCUTANEOUS
     Route: 064
     Dates: start: 20060214, end: 20060315
  2. INNOHEP [Suspect]
     Dosage: TRANSPLACENTAL, 2 IN 1 D, SUBCUTANEOUS, 2 IN 1 D, 2 IN 1 D, SUBCUTANEOUS, 2 IN 1 D, SUBCUTANEOUS
     Route: 064
     Dates: start: 20060315, end: 20060322
  3. INNOHEP [Suspect]
     Dosage: TRANSPLACENTAL, 2 IN 1 D, SUBCUTANEOUS, 2 IN 1 D, 2 IN 1 D, SUBCUTANEOUS, 2 IN 1 D, SUBCUTANEOUS
     Route: 064
     Dates: start: 20060322, end: 20060509
  4. INNOHEP [Suspect]
     Dosage: TRANSPLACENTAL, 2 IN 1 D, SUBCUTANEOUS, 2 IN 1 D, 2 IN 1 D, SUBCUTANEOUS, 2 IN 1 D, SUBCUTANEOUS
     Route: 064
     Dates: start: 20060509, end: 20060705
  5. INNOHEP [Suspect]
     Dosage: TRANSPLACENTAL, 2 IN 1 D, SUBCUTANEOUS, 2 IN 1 D, 2 IN 1 D, SUBCUTANEOUS, 2 IN 1 D, SUBCUTANEOUS
     Route: 064
     Dates: start: 20060209, end: 20061001
  6. INNOHEP [Suspect]
     Dosage: TRANSPLACENTAL, 2 IN 1 D, SUBCUTANEOUS, 2 IN 1 D, 2 IN 1 D, SUBCUTANEOUS, 2 IN 1 D, SUBCUTANEOUS
     Route: 064
     Dates: start: 20060711, end: 20061009
  7. WARFARIN SODIUM [Concomitant]
  8. RANITIDINE [Concomitant]
  9. STEMETIL (PROCHLORPERAZINE) [Concomitant]
  10. MEPERIDINE HCL [Concomitant]
  11. MAXOLON [Concomitant]
  12. GLYCERINE SUPPOSITORIES (GLYCEROL) [Concomitant]
  13. ONDANSETRON [Concomitant]
  14. THIOPENTAL SODIUM [Concomitant]
  15. SUXAMETHONIUM (SUXAMETHONIUM) [Concomitant]
  16. AUGMENTIN '125' [Concomitant]
  17. OXYTOCIN [Concomitant]
  18. MORPHINE [Concomitant]
  19. FENTANYL-100 [Concomitant]
  20. ATRACURIUM BESYLATE [Concomitant]
  21. GLYCOPYRRONIUM (GLYCOPYRRONIUM) [Concomitant]
  22. NEOSTIGMINE (NEOSTIGMINE) [Concomitant]
  23. ACETAMINOPHEN [Concomitant]
  24. SODIUM CITRATE [Concomitant]

REACTIONS (3)
  - CAESAREAN SECTION [None]
  - MATERNAL DRUGS AFFECTING FOETUS [None]
  - PYELOCALIECTASIS [None]
